FAERS Safety Report 5654589-5 (Version None)
Quarter: 2008Q1

REPORT INFORMATION
  Report Type: 
  Country: None (occurrence: None)
  Receive Date: 20080307
  Receipt Date: 20080225
  Transmission Date: 20080703
  Serious: Yes (Disabling)
  Sender: FDA-Public Use
  Company Number: JP-JNJFOC-20080300442

PATIENT
  Age: 82 Year
  Sex: Female

DRUGS (3)
  1. CRAVIT [Suspect]
     Indication: BRONCHITIS
     Route: 048
     Dates: start: 20080220, end: 20080220
  2. SOLANTAL [Concomitant]
     Route: 065
  3. MEDICON [Concomitant]
     Route: 065

REACTIONS (2)
  - DELUSION [None]
  - HALLUCINATION [None]
